FAERS Safety Report 7769980-0 (Version None)
Quarter: 2011Q3

REPORT INFORMATION
  Report Type: 
  Country: None (occurrence: None)
  Receive Date: 20110922
  Receipt Date: 20110916
  Transmission Date: 20111222
  Serious: Yes (Hospitalization)
  Sender: FDA-Public Use
  Company Number: DE-GLAXOSMITHKLINE-Z0010732A

PATIENT
  Sex: Male
  Weight: 125.6 kg

DRUGS (4)
  1. ASPIRIN [Concomitant]
     Indication: MITRAL VALVE INCOMPETENCE
     Dosage: 100MG PER DAY
     Route: 048
     Dates: start: 20000101
  2. FLUTICASONE PROPIONATE/SALMETEROL [Suspect]
     Indication: CHRONIC OBSTRUCTIVE PULMONARY DISEASE
     Route: 055
     Dates: start: 20110607
  3. RAMIPRIL [Concomitant]
     Indication: HYPERTENSION
     Dosage: 10MG PER DAY
     Route: 048
     Dates: start: 20000101
  4. BISOPROLOL FUMARATE [Concomitant]
     Indication: HYPERTENSION
     Dosage: 5MG PER DAY
     Route: 048
     Dates: start: 20000101, end: 20110721

REACTIONS (1)
  - ATRIAL FIBRILLATION [None]
